FAERS Safety Report 13919320 (Version 3)
Quarter: 2017Q4

REPORT INFORMATION
  Report Type: Spontaneous
  Country: US (occurrence: US)
  Receive Date: 20170830
  Receipt Date: 20171026
  Transmission Date: 20180320
  Serious: Yes (Hospitalization, Other)
  Sender: FDA-Public Use
  Company Number: US-ABBVIE-17K-163-2083108-00

PATIENT
  Age: 71 Year
  Sex: Male
  Weight: 68 kg

DRUGS (15)
  1. LEVOTHROID [Concomitant]
     Active Substance: LEVOTHYROXINE SODIUM
     Indication: HYPOTHYROIDISM
     Dates: start: 1984
  2. FISH OIL [Concomitant]
     Active Substance: FISH OIL
     Indication: ROUTINE HEALTH MAINTENANCE
     Dates: start: 201401
  3. ATENOLOL. [Concomitant]
     Active Substance: ATENOLOL
     Indication: HYPERTENSION
     Dates: start: 20150708
  4. COUMADIN [Concomitant]
     Active Substance: WARFARIN SODIUM
     Indication: THROMBOSIS PROPHYLAXIS
     Dates: start: 20150405
  5. HUMIRA [Suspect]
     Active Substance: ADALIMUMAB
     Indication: RHEUMATOID ARTHRITIS
     Route: 058
     Dates: start: 20140423, end: 20170801
  6. METHOTREXATE SODIUM. [Suspect]
     Active Substance: METHOTREXATE SODIUM
     Indication: RHEUMATOID ARTHRITIS
     Route: 048
     Dates: start: 20130906, end: 20170807
  7. ULTRAM [Concomitant]
     Active Substance: TRAMADOL HYDROCHLORIDE
     Indication: RHEUMATOID ARTHRITIS
     Dates: start: 20140908
  8. AMARYL [Concomitant]
     Active Substance: GLIMEPIRIDE
     Indication: DIABETES MELLITUS
     Dates: start: 201309
  9. FLEXERIL [Concomitant]
     Active Substance: CYCLOBENZAPRINE HYDROCHLORIDE
     Indication: INTERVERTEBRAL DISC DEGENERATION
     Dates: start: 20111013
  10. PRILOSEC [Concomitant]
     Active Substance: OMEPRAZOLE MAGNESIUM
     Indication: GASTROOESOPHAGEAL REFLUX DISEASE
     Dates: start: 201307
  11. VITAMIN D3 [Concomitant]
     Active Substance: CHOLECALCIFEROL
     Indication: ROUTINE HEALTH MAINTENANCE
     Dates: start: 2013
  12. VITAMIN E [Concomitant]
     Active Substance: .ALPHA.-TOCOPHEROL
     Indication: ROUTINE HEALTH MAINTENANCE
     Dates: start: 201402
  13. NORVASC [Concomitant]
     Active Substance: AMLODIPINE BESYLATE
     Indication: HYPERTENSION
     Dates: start: 20170615
  14. METFORMIN [Concomitant]
     Active Substance: METFORMIN HYDROCHLORIDE
     Indication: DIABETES MELLITUS
     Dates: start: 20160907
  15. FOLIC ACID. [Concomitant]
     Active Substance: FOLIC ACID
     Indication: RHEUMATOID ARTHRITIS
     Dates: start: 1999

REACTIONS (27)
  - Rales [Unknown]
  - Atrial fibrillation [Unknown]
  - Asthenia [Unknown]
  - Inflammation [Unknown]
  - Pneumonia [Unknown]
  - Enterobacter infection [Unknown]
  - West Nile viral infection [Unknown]
  - Encephalitis [Recovered/Resolved]
  - Deep vein thrombosis [Unknown]
  - Splenomegaly [Unknown]
  - Lymphadenopathy [Unknown]
  - Pancytopenia [Unknown]
  - Arthropod bite [Unknown]
  - Dysphagia [Unknown]
  - Thrombophlebitis superficial [Unknown]
  - Eye infection fungal [Unknown]
  - Staphylococcal infection [Unknown]
  - Diarrhoea [Unknown]
  - Endocarditis [Unknown]
  - Systemic candida [Recovering/Resolving]
  - Meningitis cryptococcal [Unknown]
  - Urinary tract infection fungal [Unknown]
  - Pyrexia [Unknown]
  - Drug eruption [Unknown]
  - Cryptococcosis [Unknown]
  - Hypoxia [Unknown]
  - Clostridium difficile infection [Unknown]

NARRATIVE: CASE EVENT DATE: 201708
